FAERS Safety Report 17693401 (Version 1)
Quarter: 2020Q2

REPORT INFORMATION
  Report Type: Spontaneous
  Country: CA (occurrence: CA)
  Receive Date: 20200422
  Receipt Date: 20200422
  Transmission Date: 20200714
  Serious: Yes (Other)
  Sender: FDA-Public Use
  Company Number: CA-PFIZER INC-2018388564

PATIENT
  Age: 63 Year
  Sex: Female

DRUGS (10)
  1. METHOTREXATE SODIUM. [Suspect]
     Active Substance: METHOTREXATE SODIUM
     Dosage: UNK(LOWERED)
     Dates: start: 2018, end: 2018
  2. METHOTREXATE SODIUM. [Suspect]
     Active Substance: METHOTREXATE SODIUM
     Dosage: 50 MG, WEEKLY
     Dates: start: 2019, end: 2019
  3. LEUCOVORIN CALCIUM. [Concomitant]
     Active Substance: LEUCOVORIN CALCIUM
     Indication: SUPPLEMENTATION THERAPY
     Dosage: 5 MG, DAILY
     Route: 048
     Dates: start: 20181112
  4. VIT D [Concomitant]
     Active Substance: VITAMIN D NOS
     Indication: VITAMIN SUPPLEMENTATION
     Dosage: 1000 IU, DAILY
     Route: 048
     Dates: start: 2016
  5. METHOTREXATE SODIUM. [Suspect]
     Active Substance: METHOTREXATE SODIUM
     Dosage: UNK (LOWERED)
     Dates: start: 2019
  6. XELJANZ [Concomitant]
     Active Substance: TOFACITINIB CITRATE
     Indication: RHEUMATOID ARTHRITIS
     Dosage: 5 MG, 2X/DAY
     Route: 048
     Dates: start: 20180927
  7. FOLIC ACID. [Concomitant]
     Active Substance: FOLIC ACID
     Indication: VITAMIN SUPPLEMENTATION
     Dosage: 1 MG, DAILY
     Route: 048
     Dates: start: 20181112
  8. TRIAMTERENE AND HYDROCHLOROTHIAZIDE [Concomitant]
     Active Substance: HYDROCHLOROTHIAZIDE\TRIAMTERENE
     Indication: OEDEMA
     Dosage: UNK, DAILY (50/25 MG OD)
     Route: 048
     Dates: start: 2003
  9. METHOTREXATE SODIUM. [Suspect]
     Active Substance: METHOTREXATE SODIUM
     Indication: RHEUMATOID ARTHRITIS
     Dosage: 50 MG, WEEKLY
     Dates: end: 2018
  10. METHOTREXATE SODIUM. [Suspect]
     Active Substance: METHOTREXATE SODIUM
     Dosage: 20 MG, WEEKLY
     Route: 058
     Dates: start: 20181103, end: 20190903

REACTIONS (6)
  - Pain in extremity [Recovered/Resolved with Sequelae]
  - Alopecia [Recovered/Resolved]
  - Off label use [Unknown]
  - Arthralgia [Recovered/Resolved with Sequelae]
  - Product use issue [Unknown]
  - Weight increased [Not Recovered/Not Resolved]

NARRATIVE: CASE EVENT DATE: 2015
